FAERS Safety Report 5120131-0 (Version None)
Quarter: 2006Q4

REPORT INFORMATION
  Report Type: 
  Country: None (occurrence: None)
  Receive Date: 20061002
  Receipt Date: 20061002
  Transmission Date: 20070319
  Serious: Yes (Life-Threatening, Hospitalization)
  Sender: FDA-Public Use
  Company Number: None

PATIENT
  Age: 63 Year
  Sex: Male
  Weight: 93 kg

DRUGS (6)
  1. DICLOFENAC [Suspect]
     Indication: PAIN
     Dosage: 75 MG PO BID
     Route: 048
     Dates: start: 20011005, end: 20060601
  2. ALBUTEROL SULFATE AND IPRATROPIUM BROMIDE [Concomitant]
  3. GEMFIBROZIL [Concomitant]
  4. OMEPRAZOLE [Concomitant]
  5. LOVASTATIN [Concomitant]
  6. VERAPAMIL HCL [Concomitant]

REACTIONS (3)
  - CARDIAC FAILURE CONGESTIVE [None]
  - GASTROINTESTINAL HAEMORRHAGE [None]
  - RENAL IMPAIRMENT [None]
